FAERS Safety Report 7932178-7 (Version None)
Quarter: 2011Q4

REPORT INFORMATION
  Report Type: 
  Country: None (occurrence: None)
  Receive Date: 20111121
  Receipt Date: 20111114
  Transmission Date: 20120403
  Serious: Yes (Other)
  Sender: FDA-Public Use
  Company Number: DE-B.I. PHARMACEUTICALS,INC./RIDGEFIELD-2011-DE-06366DE

PATIENT
  Age: 84 Year
  Sex: Female
  Weight: 70 kg

DRUGS (2)
  1. PRADAXA [Suspect]
     Dosage: 220 MG
     Dates: start: 20110601, end: 20111114
  2. PRADAXA [Suspect]
     Dates: start: 20111114

REACTIONS (3)
  - BLOOD CREATININE INCREASED [None]
  - RENAL IMPAIRMENT [None]
  - CREATININE RENAL CLEARANCE DECREASED [None]
